FAERS Safety Report 18570199 (Version 3)
Quarter: 2021Q2

REPORT INFORMATION
  Report Type: Report from Study
  Country: US (occurrence: US)
  Receive Date: 20201202
  Receipt Date: 20210601
  Transmission Date: 20210717
  Serious: Yes (Other)
  Sender: FDA-Public Use
  Company Number: NVSC2020US319765

PATIENT
  Age: 77 Year
  Sex: Male

DRUGS (1)
  1. ENTRESTO [Suspect]
     Active Substance: SACUBITRIL\VALSARTAN
     Indication: CARDIAC FAILURE
     Dosage: UNK UNK, UNKNOWN
     Route: 065

REACTIONS (3)
  - Speech disorder [Unknown]
  - Cerebrovascular accident [Unknown]
  - Hemiparesis [Unknown]

NARRATIVE: CASE EVENT DATE: 202102
